FAERS Safety Report 6761508-7 (Version None)
Quarter: 2010Q2

REPORT INFORMATION
  Report Type: 
  Country: None (occurrence: None)
  Receive Date: 20100607
  Receipt Date: 20100526
  Transmission Date: 20101027
  Serious: Yes (Death, Hospitalization)
  Sender: FDA-Public Use
  Company Number: 2009AC000383

PATIENT
  Age: 57 Year
  Sex: Female

DRUGS (31)
  1. DIGOXIN [Suspect]
     Indication: ATRIAL FIBRILLATION
     Dosage: 0.125 MG;QD;PO
     Route: 048
  2. DIGOXIN [Suspect]
     Dosage: .25 MG;QD
     Dates: start: 20060323, end: 20060822
  3. DIGOXIN [Suspect]
     Dosage: 125 MCG;QD;PO
     Route: 048
     Dates: start: 20080129, end: 20080330
  4. DIGOXIN [Suspect]
     Dosage: 0.25 MG;QD;PO
     Route: 048
     Dates: start: 19980401
  5. ASCORBIC ACID [Concomitant]
  6. VITAMIN B-12 [Concomitant]
  7. CARDIZEM [Concomitant]
  8. REVATIO [Concomitant]
  9. TIKOSYN [Concomitant]
  10. BENICAR [Concomitant]
  11. TAPERING [Concomitant]
  12. MULTI-VITAMIN [Concomitant]
  13. FOSAMAX [Concomitant]
  14. LASIX [Concomitant]
  15. ADVAIR DISKUS 100/50 [Concomitant]
  16. ACIPHEX [Concomitant]
  17. XOPENEX [Concomitant]
  18. DUONEB [Concomitant]
  19. PREDNISONE [Concomitant]
  20. NEXIUM [Concomitant]
  21. SPIRIVA [Concomitant]
  22. COUMADIN [Concomitant]
  23. POTASSIUM [Concomitant]
  24. LASIX [Concomitant]
  25. XOPENEX [Concomitant]
  26. ALBUTEROL [Concomitant]
  27. POTASSIUM CHLORIDE [Concomitant]
  28. PROTONIX [Concomitant]
  29. COZAAR [Concomitant]
  30. LEVAQUIN [Concomitant]
  31. LISINOPRIL [Concomitant]

REACTIONS (36)
  - ANGER [None]
  - ANHEDONIA [None]
  - ANXIETY [None]
  - AORTIC VALVE CALCIFICATION [None]
  - ASTHMA [None]
  - ATELECTASIS [None]
  - ATRIAL FIBRILLATION [None]
  - CARDIAC FAILURE CONGESTIVE [None]
  - CARDIO-RESPIRATORY ARREST [None]
  - CARDIOGENIC SHOCK [None]
  - CARDIOMEGALY [None]
  - CHEST DISCOMFORT [None]
  - CHEST PAIN [None]
  - CONDITION AGGRAVATED [None]
  - CORONARY ARTERY STENOSIS [None]
  - DILATATION VENTRICULAR [None]
  - DIZZINESS [None]
  - DYSPEPSIA [None]
  - DYSPNOEA [None]
  - FATIGUE [None]
  - FLANK PAIN [None]
  - INJURY [None]
  - LEFT VENTRICULAR DYSFUNCTION [None]
  - LEFT VENTRICULAR HYPERTROPHY [None]
  - LOBAR PNEUMONIA [None]
  - MITRAL VALVE INCOMPETENCE [None]
  - MYOCARDIAL INFARCTION [None]
  - OEDEMA PERIPHERAL [None]
  - ORTHOPNOEA [None]
  - PAIN [None]
  - PALPITATIONS [None]
  - PULMONARY HYPERTENSION [None]
  - RESPIRATORY FAILURE [None]
  - TRICUSPID VALVE INCOMPETENCE [None]
  - UNEVALUABLE EVENT [None]
  - VENTRICULAR EXTRASYSTOLES [None]
